FAERS Safety Report 16771491 (Version 4)
Quarter: 2019Q4

REPORT INFORMATION
  Report Type: Spontaneous
  Country: US (occurrence: US)
  Receive Date: 20190904
  Receipt Date: 20191213
  Transmission Date: 20200122
  Serious: No
  Sender: FDA-Public Use
  Company Number: US-PFIZER INC-2019377118

PATIENT
  Age: 65 Year
  Sex: Female
  Weight: 52.61 kg

DRUGS (6)
  1. LYRICA [Suspect]
     Active Substance: PREGABALIN
     Indication: PAIN IN EXTREMITY
     Dosage: UNK
     Dates: start: 201709
  2. LYRICA [Suspect]
     Active Substance: PREGABALIN
     Indication: PAIN
     Dosage: 200 MG, ONCE A DAY
     Route: 048
     Dates: start: 201907
  3. PROZAC [Concomitant]
     Active Substance: FLUOXETINE HYDROCHLORIDE
     Dosage: UNK
     Dates: start: 2001
  4. PROZAC [Concomitant]
     Active Substance: FLUOXETINE HYDROCHLORIDE
     Dosage: UNK
     Dates: start: 2001
  5. LYRICA [Suspect]
     Active Substance: PREGABALIN
     Dosage: 200 MG, ONCE A DAY
     Route: 048
     Dates: start: 201908
  6. SIMVASTATIN. [Concomitant]
     Active Substance: SIMVASTATIN
     Dosage: UNK
     Dates: start: 1999

REACTIONS (3)
  - Pre-existing condition improved [Not Recovered/Not Resolved]
  - Vision blurred [Unknown]
  - Therapeutic response unexpected [Not Recovered/Not Resolved]
